FAERS Safety Report 8765922 (Version 1)
Quarter: 2012Q4

REPORT INFORMATION
  Report Type: 
  Country: US (occurrence: US)
  Receive Date: 20120904
  Receipt Date: 20120904
  Transmission Date: 20130627
  Serious: No
  Sender: FDA-Public Use
  Company Number: US-009507513-1208USA008802

PATIENT

DRUGS (1)
  1. IMPLANON [Suspect]
     Indication: CONTRACEPTION
     Dosage: 3 year implant
     Route: 059
     Dates: start: 20111214

REACTIONS (6)
  - Breast discharge [Unknown]
  - Back pain [Unknown]
  - Depression [Unknown]
  - Weight increased [Unknown]
  - Mood swings [Unknown]
  - Metrorrhagia [Unknown]
